FAERS Safety Report 24893646 (Version 3)
Quarter: 2025Q4

REPORT INFORMATION
  Report Type: Spontaneous
  Country: EU (occurrence: EU)
  Receive Date: 20250128
  Receipt Date: 20251127
  Transmission Date: 20260117
  Serious: Yes (Hospitalization)
  Sender: ROCHE
  Company Number: EU-ROCHE-10000181297

PATIENT
  Sex: Female
  Weight: 62 kg

DRUGS (4)
  1. OCREVUS [Suspect]
     Active Substance: OCRELIZUMAB
     Indication: Relapsing-remitting multiple sclerosis
     Dosage: DATES OF TREATMENT: DEC/2022, 09/OCT/2023, 09/APR/2024 AND 10/OCT/2024
     Route: 042
     Dates: start: 202206
  2. OCREVUS [Suspect]
     Active Substance: OCRELIZUMAB
     Dosage: DATES OF TREATMENT: DEC/2022, 09/OCT/2023, 09/APR/2024 AND 10/OCT/2024
     Route: 042
     Dates: start: 20250613
  3. BACLOFEN [Concomitant]
     Active Substance: BACLOFEN
  4. SPIRONOLACTONE [Concomitant]
     Active Substance: SPIRONOLACTONE

REACTIONS (7)
  - Maternal exposure before pregnancy [Unknown]
  - Headache [Not Recovered/Not Resolved]
  - Disorientation [Unknown]
  - Somnolence [Recovering/Resolving]
  - Vision blurred [Unknown]
  - Musculoskeletal stiffness [Unknown]
  - Maternal exposure during pregnancy [Unknown]
